FAERS Safety Report 23476555 (Version 1)
Quarter: 2024Q1

REPORT INFORMATION
  Report Type: Report from Study
  Country: US (occurrence: US)
  Receive Date: 20240204
  Receipt Date: 20240204
  Transmission Date: 20240409
  Serious: No
  Sender: FDA-Public Use
  Company Number: US-EXELIXIS-CABO-23063501

PATIENT
  Age: 70 Year
  Sex: Female

DRUGS (15)
  1. CABOMETYX [Suspect]
     Active Substance: CABOZANTINIB S-MALATE
     Indication: Soft tissue sarcoma
     Dosage: 20 MG, QD
     Dates: start: 20230414
  2. CYMBALTA [Concomitant]
     Active Substance: DULOXETINE HYDROCHLORIDE
  3. ESTRADIOL [Concomitant]
     Active Substance: ESTRADIOL
  4. FAMOTIDINE [Concomitant]
     Active Substance: FAMOTIDINE
  5. FLEXERIL [Concomitant]
     Active Substance: CYCLOBENZAPRINE HYDROCHLORIDE
  6. FLUDROCORTISONE [Concomitant]
     Active Substance: FLUDROCORTISONE
  7. FOLIC ACID [Concomitant]
     Active Substance: FOLIC ACID
  8. GABAPENTIN [Concomitant]
     Active Substance: GABAPENTIN
  9. LORAZEPAM [Concomitant]
     Active Substance: LORAZEPAM
  10. ONDANSETRON [Concomitant]
     Active Substance: ONDANSETRON
  11. PREDNISONE [Concomitant]
     Active Substance: PREDNISONE
  12. SUMATRIPTAN [Concomitant]
     Active Substance: SUMATRIPTAN
  13. TRAZODONE [Concomitant]
     Active Substance: TRAZODONE HYDROCHLORIDE
  14. METHOTREXATE [Concomitant]
     Active Substance: METHOTREXATE
  15. CELEBREX [Concomitant]
     Active Substance: CELECOXIB

REACTIONS (9)
  - Vitamin B12 decreased [Not Recovered/Not Resolved]
  - Skin ulcer [Not Recovered/Not Resolved]
  - Impaired healing [Unknown]
  - Blood pressure decreased [Not Recovered/Not Resolved]
  - Nausea [Not Recovered/Not Resolved]
  - Diarrhoea [Not Recovered/Not Resolved]
  - Arthralgia [Not Recovered/Not Resolved]
  - Lung neoplasm [Not Recovered/Not Resolved]
  - Off label use [Unknown]

NARRATIVE: CASE EVENT DATE: 20230609
